FAERS Safety Report 6600230-4 (Version None)
Quarter: 2010Q1

REPORT INFORMATION
  Report Type: 
  Country: None (occurrence: None)
  Receive Date: 20100224
  Receipt Date: 20100222
  Transmission Date: 20100710
  Serious: Yes (Hospitalization)
  Sender: FDA-Public Use
  Company Number: US-B.I. PHARMACEUTICALS,INC./RIDGEFIELD-2010-BP-01328BP

PATIENT
  Sex: Male

DRUGS (8)
  1. SPIRIVA [Suspect]
     Indication: CHRONIC OBSTRUCTIVE PULMONARY DISEASE
     Dosage: 18 MCG
     Dates: start: 20080201
  2. SPIRIVA [Suspect]
     Indication: ASTHMA
  3. COMBIVENT [Suspect]
  4. ADVAIR DISKUS 100/50 [Suspect]
  5. SYMBICORT [Concomitant]
     Indication: DYSPNOEA
  6. XOPENEX [Concomitant]
     Indication: DYSPNOEA
  7. DILTIAZEM HCL [Concomitant]
     Dosage: 180 MG
  8. FINASTERIDE [Concomitant]
     Dosage: 5 MG

REACTIONS (4)
  - BLOOD CREATINE PHOSPHOKINASE INCREASED [None]
  - DRUG INEFFECTIVE [None]
  - HEART RATE INCREASED [None]
  - POLYMYOSITIS [None]
